FAERS Safety Report 22658754 (Version 1)
Quarter: 2023Q2

REPORT INFORMATION
  Report Type: Spontaneous
  Country: GB (occurrence: GB)
  Receive Date: 20230630
  Receipt Date: 20230630
  Transmission Date: 20230721
  Serious: Yes (Death, Other)
  Sender: FDA-Public Use
  Company Number: GB-RECORDATI-2023004207

PATIENT

DRUGS (2)
  1. OSILODROSTAT [Suspect]
     Active Substance: OSILODROSTAT
     Indication: Ectopic ACTH syndrome
     Dosage: 2 MILLIGRAM, BID
     Dates: start: 20230109, end: 2023
  2. OSILODROSTAT [Suspect]
     Active Substance: OSILODROSTAT
     Indication: Neuroendocrine carcinoma metastatic
     Dosage: 5 MILLIGRAM, BID
     Dates: start: 2023, end: 20230528

REACTIONS (2)
  - Neoplasm progression [Fatal]
  - Biliary sepsis [Unknown]

NARRATIVE: CASE EVENT DATE: 20230101
